FAERS Safety Report 18584221 (Version 1)
Quarter: 2020Q4

REPORT INFORMATION
  Report Type: Spontaneous
  Country: FR (occurrence: FR)
  Receive Date: 20201207
  Receipt Date: 20201207
  Transmission Date: 20210114
  Serious: Yes (Other)
  Sender: FDA-Public Use
  Company Number: FR-TEVA-2020-FR-1854663

PATIENT
  Age: 65 Year
  Sex: Male
  Weight: 79 kg

DRUGS (10)
  1. PANTOPRAZOLE [Concomitant]
     Active Substance: PANTOPRAZOLE
  2. OFLOXACINE [Concomitant]
     Active Substance: OFLOXACIN
  3. ANSATIPINE [Concomitant]
     Active Substance: RIFABUTIN
  4. ALLOPURINOL. [Concomitant]
     Active Substance: ALLOPURINOL
  5. GEMCITABINE. [Suspect]
     Active Substance: GEMCITABINE
     Indication: BLADDER CANCER STAGE IV
     Dosage: UNIT DOSE : 2 GRAM
     Route: 041
     Dates: start: 20180802, end: 20181028
  6. SOLUPRED 20 MG, COMPRIME ORODISPERSIBLE [Concomitant]
     Active Substance: PREDNISOLONE SODIUM METAZOATE
  7. CISPLATINE [Suspect]
     Active Substance: CISPLATIN
     Indication: BLADDER CANCER STAGE IV
     Dosage: UNIT DOSE: 100 MG
     Route: 041
     Dates: start: 20180802, end: 20181028
  8. OLANZAPINE. [Concomitant]
     Active Substance: OLANZAPINE
  9. RIMIFON [Concomitant]
     Active Substance: ISONIAZID
  10. ACUPAN [Concomitant]
     Active Substance: NEFOPAM HYDROCHLORIDE

REACTIONS (2)
  - Hypoacusis [Not Recovered/Not Resolved]
  - Neuropathy peripheral [Not Recovered/Not Resolved]

NARRATIVE: CASE EVENT DATE: 201811
